FAERS Safety Report 15247238 (Version 2)
Quarter: 2018Q4

REPORT INFORMATION
  Report Type: Report from Study
  Country: US (occurrence: US)
  Receive Date: 20180807
  Receipt Date: 20181118
  Transmission Date: 20190204
  Serious: Yes (Hospitalization)
  Sender: FDA-Public Use
  Company Number: US-BIOGEN-2018BI00564569

PATIENT
  Sex: Male

DRUGS (2)
  1. TYSABRI [Suspect]
     Active Substance: NATALIZUMAB
     Indication: MULTIPLE SCLEROSIS
     Dosage: INFUSE FOR 1 HOUR
     Route: 042
     Dates: start: 20071218, end: 20101123
  2. TYSABRI [Suspect]
     Active Substance: NATALIZUMAB
     Dosage: INFUSE FOR 1 HOUR
     Route: 042
     Dates: start: 20110601, end: 20171204

REACTIONS (2)
  - Cellulitis [Not Recovered/Not Resolved]
  - Urinary tract infection [Recovered/Resolved with Sequelae]

NARRATIVE: CASE EVENT DATE: 2017
